FAERS Safety Report 24997495 (Version 1)
Quarter: 2025Q1

REPORT INFORMATION
  Report Type: Spontaneous
  Country: ES (occurrence: ES)
  Receive Date: 20250222
  Receipt Date: 20250222
  Transmission Date: 20250408
  Serious: Yes (Hospitalization, Other)
  Sender: COSETTE PHARMACEUTICALS INC
  Company Number: ES-NORMON-202402193

PATIENT

DRUGS (7)
  1. AMBIEN [Suspect]
     Active Substance: ZOLPIDEM TARTRATE
     Indication: Product used for unknown indication
     Dosage: AT BEDTIME
     Route: 065
  2. LAMOTRIGINE [Suspect]
     Active Substance: LAMOTRIGINE
     Indication: Product used for unknown indication
     Dosage: 100 MG, QD (AT BREAKFAST)
     Route: 065
  3. HYDROCHLOROTHIAZIDE [Suspect]
     Active Substance: HYDROCHLOROTHIAZIDE
     Indication: Product used for unknown indication
     Dosage: 160 MG, QD (AT BREAKFAST)
     Route: 065
  4. VALSARTAN [Suspect]
     Active Substance: VALSARTAN
     Indication: Product used for unknown indication
     Dosage: 160 MG, QD (AT BREAKFAST)
     Route: 065
  5. CLOZAPINE [Suspect]
     Active Substance: CLOZAPINE
     Indication: Product used for unknown indication
     Dosage: 100 MG, BID (AT LUNCH AND DINNER)
     Route: 065
  6. LORAZEPAM [Suspect]
     Active Substance: LORAZEPAM
     Indication: Product used for unknown indication
     Dosage: 1 MG, Q8H
     Route: 065
  7. EZETIMIBE\SIMVASTATIN [Suspect]
     Active Substance: EZETIMIBE\SIMVASTATIN
     Indication: Product used for unknown indication
     Dosage: 1 DF, HS (40/10 MG)
     Route: 065

REACTIONS (9)
  - Renal impairment [Recovering/Resolving]
  - Condition aggravated [Recovering/Resolving]
  - Hyponatraemia [Recovering/Resolving]
  - Bradyphrenia [Recovering/Resolving]
  - Balance disorder [Recovering/Resolving]
  - Dysarthria [Recovering/Resolving]
  - Dizziness [Recovering/Resolving]
  - Asthenia [Recovering/Resolving]
  - Gait disturbance [Recovering/Resolving]
